FAERS Safety Report 9243393 (Version 1)
Quarter: 2013Q2

REPORT INFORMATION
  Report Type: Spontaneous
  Country: GB (occurrence: GB)
  Receive Date: 20130420
  Receipt Date: 20130420
  Transmission Date: 20140414
  Serious: Yes (Hospitalization, Other)
  Sender: FDA-Public Use
  Company Number: GB-B.I. PHARMACEUTICALS,INC./RIDGEFIELD-2013-UK-00912UK

PATIENT
  Age: 75 Year
  Sex: Male

DRUGS (10)
  1. SPIRIVA [Suspect]
     Indication: CHRONIC OBSTRUCTIVE PULMONARY DISEASE
     Dosage: 18 MCG
     Route: 055
     Dates: end: 20120330
  2. ATORVASTATIN [Concomitant]
  3. BISOPROLOL [Concomitant]
  4. BUMETANIDE [Concomitant]
  5. FINASTERIDE [Concomitant]
  6. ISMN [Concomitant]
  7. PREGABALIN [Concomitant]
  8. SERETIDE [Concomitant]
  9. TAMSULOSIN [Concomitant]
  10. TRAMADOL [Concomitant]

REACTIONS (4)
  - Dizziness [Recovered/Resolved]
  - Renal impairment [Recovered/Resolved]
  - Syncope [Recovered/Resolved]
  - Asthenia [Recovered/Resolved]
